FAERS Safety Report 4553789-5 (Version None)
Quarter: 2005Q1

REPORT INFORMATION
  Report Type: 
  Country: None (occurrence: None)
  Receive Date: 20050112
  Receipt Date: 20050112
  Transmission Date: 20050727
  Serious: Yes (Other)
  Sender: FDA-Public Use
  Company Number: None

PATIENT
  Age: 39 Year
  Sex: Female
  Weight: 58.514 kg

DRUGS (1)
  1. SEASONALE [Suspect]
     Indication: ENDOMETRIOSIS
     Dosage: 1 X A DAY @ NIGHT

REACTIONS (5)
  - DYSMENORRHOEA [None]
  - ENDOCRINE DISORDER [None]
  - MENORRHAGIA [None]
  - MENSTRUATION IRREGULAR [None]
  - OLIGOMENORRHOEA [None]
